APPROVED DRUG PRODUCT: NOR-QD
Active Ingredient: NORETHINDRONE
Strength: 0.35MG
Dosage Form/Route: TABLET;ORAL-28
Application: N017060 | Product #001 | TE Code: AB1
Applicant: TEVA BRANDED PHARMACEUTICAL PRODUCTS R AND D INC
Approved: Approved Prior to Jan 1, 1982 | RLD: Yes | RS: Yes | Type: RX